FAERS Safety Report 5050373-4 (Version None)
Quarter: 2006Q3

REPORT INFORMATION
  Report Type: 
  Country: None (occurrence: None)
  Receive Date: 20060707
  Receipt Date: 20060622
  Transmission Date: 20061208
  Serious: Yes (Hospitalization)
  Sender: FDA-Public Use
  Company Number: 2006RR-02762

PATIENT

DRUGS (1)
  1. IBUPROFEN [Suspect]
     Indication: PATENT DUCTUS ARTERIOSUS REPAIR
     Dosage: SEE IMAGE

REACTIONS (2)
  - NEONATAL HYPOXIA [None]
  - PULMONARY HYPERTENSION [None]
